FAERS Safety Report 5602064-6 (Version None)
Quarter: 2008Q1

REPORT INFORMATION
  Report Type: 
  Country: None (occurrence: None)
  Receive Date: 20080122
  Receipt Date: 20080108
  Transmission Date: 20080703
  Serious: Yes (Death)
  Sender: FDA-Public Use
  Company Number: MEDI-0006382

PATIENT

DRUGS (1)
  1. SYNAGIS [Suspect]
     Dates: start: 20071001, end: 20071001

REACTIONS (1)
  - DEATH [None]
